FAERS Safety Report 4990954-7 (Version None)
Quarter: 2006Q2

REPORT INFORMATION
  Report Type: 
  Country: None (occurrence: None)
  Receive Date: 20060503
  Receipt Date: 20050414
  Transmission Date: 20061013
  Serious: Yes (Death, Hospitalization, Other)
  Sender: FDA-Public Use
  Company Number: US-MERCK-0504USA02845

PATIENT
  Age: 72 Year
  Sex: Female
  Weight: 49 kg

DRUGS (12)
  1. VIOXX [Suspect]
     Indication: ARTHRITIS
     Route: 048
     Dates: start: 20030201, end: 20040901
  2. ASPIRIN [Concomitant]
     Indication: ISCHAEMIC HEART DISEASE PROPHYLAXIS
     Route: 048
     Dates: start: 20020201, end: 20041101
  3. PAXIL [Concomitant]
     Indication: DEPRESSION
     Route: 048
  4. ATIVAN [Concomitant]
     Indication: ANXIETY
     Route: 048
     Dates: start: 20020101, end: 20051001
  5. RISPERDAL [Concomitant]
     Indication: SCHIZOPHRENIA
     Route: 048
  6. LANOXIN [Concomitant]
     Route: 048
  7. NORVASC [Concomitant]
     Route: 048
  8. ENALAPRIL MALEATE [Concomitant]
     Route: 048
  9. LASIX [Concomitant]
     Route: 048
  10. ALLOPURINOL [Concomitant]
     Route: 048
  11. MINERALS (UNSPECIFIED) AND VITAMINS (UNSPECIFIED) [Concomitant]
     Route: 065
  12. UBIDECARENONE [Concomitant]
     Route: 065

REACTIONS (11)
  - AGITATION [None]
  - BALANCE DISORDER [None]
  - CONFUSIONAL STATE [None]
  - DEATH [None]
  - DEHYDRATION [None]
  - ESSENTIAL TREMOR [None]
  - GOUT [None]
  - HYPERTENSION [None]
  - RENAL FAILURE [None]
  - TRANSIENT ISCHAEMIC ATTACK [None]
  - VASCULAR DEMENTIA [None]
